FAERS Safety Report 8121185-X (Version None)
Quarter: 2012Q1

REPORT INFORMATION
  Report Type: 
  Country: None (occurrence: None)
  Receive Date: 20120208
  Receipt Date: 20120130
  Transmission Date: 20120608
  Serious: Yes (Other)
  Sender: FDA-Public Use
  Company Number: CA-JNJFOC-20120201854

PATIENT
  Sex: Female
  Weight: 85 kg

DRUGS (11)
  1. REMICADE [Suspect]
     Indication: CROHN'S DISEASE
     Route: 042
  2. ATIVAN [Concomitant]
     Route: 065
  3. WARFARIN SODIUM [Concomitant]
     Route: 065
  4. PRILOSEC [Concomitant]
     Route: 065
  5. ENTOCORT EC [Concomitant]
     Route: 065
  6. PENTASA [Concomitant]
     Route: 065
  7. TYLENOL W/ CODEINE NO. 3 [Concomitant]
     Dosage: AS NEEDED
     Route: 065
  8. POTASSIUM [Concomitant]
     Route: 065
  9. IMODIUM [Concomitant]
     Route: 065
  10. REMICADE [Suspect]
     Route: 042
     Dates: start: 20101201
  11. ALTACE [Concomitant]
     Route: 065

REACTIONS (2)
  - CROHN'S DISEASE [None]
  - DIARRHOEA [None]
